FAERS Safety Report 7806716-9 (Version None)
Quarter: 2011Q4

REPORT INFORMATION
  Report Type: 
  Country: None (occurrence: None)
  Receive Date: 20111011
  Receipt Date: 20111001
  Transmission Date: 20120403
  Serious: Yes (Other)
  Sender: FDA-Public Use
  Company Number: CA-JNJFOC-20111000665

PATIENT
  Sex: Female
  Weight: 73.94 kg

DRUGS (11)
  1. PRO-AAS EC [Concomitant]
     Route: 048
  2. GLYBURIDE [Concomitant]
     Route: 065
  3. PREDNISONE [Concomitant]
     Route: 048
  4. REMICADE [Suspect]
     Indication: COLITIS ULCERATIVE
     Route: 042
     Dates: start: 20070101
  5. VALSARTAN [Concomitant]
     Route: 048
  6. AMLODIPINE [Concomitant]
     Route: 048
  7. TERIPARATIDE [Concomitant]
     Route: 058
     Dates: start: 20110101
  8. MESALAMINE [Concomitant]
     Route: 048
  9. ATORVASTATIN [Concomitant]
     Route: 048
  10. CARBOCAL D [Concomitant]
     Route: 048
  11. PANTOPRAZOLE [Concomitant]
     Route: 048

REACTIONS (3)
  - HAEMOGLOBIN DECREASED [None]
  - ACTIVITIES OF DAILY LIVING IMPAIRED [None]
  - WEIGHT INCREASED [None]
